FAERS Safety Report 14570219 (Version 1)
Quarter: 2018Q1

REPORT INFORMATION
  Report Type: Spontaneous
  Country: US (occurrence: US)
  Receive Date: 20180226
  Receipt Date: 20180226
  Transmission Date: 20180509
  Serious: No
  Sender: FDA-Public Use
  Company Number: US-ASTRAZENECA-2018SE12708

PATIENT
  Sex: Female

DRUGS (1)
  1. TUDORZA PRESSAIR [Suspect]
     Active Substance: ACLIDINIUM BROMIDE
     Dosage: 1 PUFF IN THE MORNING AND IN THE EVENING
     Route: 055

REACTIONS (3)
  - Wrong technique in device usage process [Unknown]
  - Dementia Alzheimer^s type [Unknown]
  - Product quality issue [Unknown]
